FAERS Safety Report 5058092-5 (Version None)
Quarter: 2006Q3

REPORT INFORMATION
  Report Type: 
  Country: None (occurrence: None)
  Receive Date: 20060721
  Receipt Date: 20050516
  Transmission Date: 20061208
  Serious: Yes (Other)
  Sender: FDA-Public Use
  Company Number: US-GLAXOSMITHKLINE-A0559050A

PATIENT
  Sex: Female

DRUGS (12)
  1. PAXIL [Suspect]
     Indication: DEPRESSION
     Route: 048
  2. AMBIEN [Suspect]
     Indication: INSOMNIA
     Dosage: 17TAB SINGLE DOSE
     Route: 065
  3. ACIPHEX [Concomitant]
  4. XANAX [Concomitant]
  5. PROVERA [Concomitant]
  6. PREMARIN [Concomitant]
  7. VERAPAMIL [Concomitant]
  8. COMPAZINE [Concomitant]
  9. SYNTHROID [Concomitant]
  10. FIORICET [Concomitant]
  11. KLONOPIN [Concomitant]
  12. ZOLOFT [Concomitant]
     Dates: start: 20010201

REACTIONS (4)
  - DRUG WITHDRAWAL SYNDROME [None]
  - INCORRECT DOSE ADMINISTERED [None]
  - INSOMNIA [None]
  - SUICIDE ATTEMPT [None]
